FAERS Safety Report 5795756-X (Version None)
Quarter: 2008Q3

REPORT INFORMATION
  Report Type: 
  Country: None (occurrence: None)
  Receive Date: 20080701
  Receipt Date: 20080623
  Transmission Date: 20090109
  Serious: Yes (Life-Threatening, Hospitalization)
  Sender: FDA-Public Use
  Company Number: RU-BAYER-200820715GPV

PATIENT
  Age: 28 Year
  Sex: Female

DRUGS (1)
  1. MIRENA [Suspect]
     Indication: CONTRACEPTION
     Route: 015
     Dates: start: 20070703

REACTIONS (5)
  - ABDOMINAL PAIN [None]
  - BLOODY DISCHARGE [None]
  - OVARIAN CYST [None]
  - RUPTURED ECTOPIC PREGNANCY [None]
  - SHOCK HAEMORRHAGIC [None]
